FAERS Safety Report 6505881-3 (Version None)
Quarter: 2009Q4

REPORT INFORMATION
  Report Type: 
  Country: None (occurrence: None)
  Receive Date: 20091218
  Receipt Date: 20091208
  Transmission Date: 20100525
  Serious: Yes (Hospitalization)
  Sender: FDA-Public Use
  Company Number: DE-ROCHE-673643

PATIENT
  Sex: Male

DRUGS (6)
  1. BEVACIZUMAB [Suspect]
     Indication: NON-SMALL CELL LUNG CANCER
     Dosage: FORM: INFUSION.
     Route: 042
     Dates: start: 20090402, end: 20090405
  2. BEVACIZUMAB [Suspect]
     Dosage: LAST DOSE PRIOR TO SAE: 30 NOVEMBER 2009
     Route: 042
  3. GEMCITABINE [Suspect]
     Indication: NON-SMALL CELL LUNG CANCER
     Dosage: FORM: INFUSION. FEQUENCY:D1,D8
     Route: 042
     Dates: start: 20090402
  4. GEMCITABINE [Suspect]
     Dosage: FORM: INFUSION. FEQUENCY:D1,D8.
     Route: 042
  5. CISPLATIN [Suspect]
     Indication: NON-SMALL CELL LUNG CANCER
     Dosage: FORM: INFUSION. FREQUENCY: D1. PERMANENTLY DISCONTINUED: 02 APRIL 2009.
     Route: 042
     Dates: start: 20090402, end: 20090402
  6. CARBOPLATIN [Suspect]
     Indication: NON-SMALL CELL LUNG CANCER
     Route: 042
     Dates: start: 20090402

REACTIONS (2)
  - CHRONIC OBSTRUCTIVE PULMONARY DISEASE [None]
  - SPINAL ANAESTHESIA [None]
